FAERS Safety Report 21703458 (Version 1)
Quarter: 2022Q4

REPORT INFORMATION
  Report Type: Report from Study
  Country: US (occurrence: US)
  Receive Date: 20221209
  Receipt Date: 20221209
  Transmission Date: 20230113
  Serious: No
  Sender: FDA-Public Use
  Company Number: US-ABBVIE-22K-163-4435759-00

PATIENT
  Sex: Male

DRUGS (2)
  1. HUMIRA [Suspect]
     Active Substance: ADALIMUMAB
     Indication: Crohn^s disease
     Route: 058
  2. JANSSEN COVID-19 VACCINE [Concomitant]
     Active Substance: AD26.COV2.S
     Indication: COVID-19 immunisation
     Dosage: 1ST DOSE - ONCE
     Route: 030
     Dates: start: 202104, end: 202104

REACTIONS (8)
  - Crohn^s disease [Recovered/Resolved]
  - Dermatitis [Recovering/Resolving]
  - Haemorrhoids [Recovering/Resolving]
  - Bowel movement irregularity [Recovering/Resolving]
  - COVID-19 [Recovered/Resolved]
  - Asthenia [Unknown]
  - Lung disorder [Unknown]
  - General symptom [Unknown]

NARRATIVE: CASE EVENT DATE: 20210101
